FAERS Safety Report 4395884-X (Version None)
Quarter: 2004Q3

REPORT INFORMATION
  Report Type: 
  Country: None (occurrence: None)
  Receive Date: 20040708
  Receipt Date: 20040624
  Transmission Date: 20050211
  Serious: Yes (Other)
  Sender: FDA-Public Use
  Company Number: USA-2002-0000680

PATIENT
  Age: 44 Year
  Sex: Male
  Weight: 101.6 kg

DRUGS (18)
  1. OXYCONTIN [Suspect]
     Indication: PAIN
     Dosage: SEE IMAGE
     Route: 048
     Dates: start: 20000615, end: 20010101
  2. TEGRETOL [Concomitant]
  3. NORVASC [Concomitant]
  4. ALPRAZOLAM [Concomitant]
  5. PAXIL [Concomitant]
  6. SEPTRA DS (TRIMETHOPRIM, SULFAMETHOXAZOLE) [Concomitant]
  7. HYDROXYZINE [Concomitant]
  8. CEFTIN [Concomitant]
  9. ACETAMINOPHEN AND HYDROCODONE BITARTRATE [Concomitant]
  10. AMOXICILLIN [Concomitant]
  11. PREVACID (LASOPRAZOLE) [Concomitant]
  12. NEURONTIN [Concomitant]
  13. CELEXA [Concomitant]
  14. AUGMENTIN [Concomitant]
  15. PROZAC [Concomitant]
  16. VIAGRA (SLDENAFIL CITRATE0 [Concomitant]
  17. PAN-MIST LA              (GUAIFENESIN, PSEUDOEPHEDRINE HYDROCHLORIDE) [Concomitant]
  18. TORADOL [Concomitant]

REACTIONS (16)
  - CONSTIPATION [None]
  - DENTAL CARIES [None]
  - DRUG DEPENDENCE [None]
  - DRUG WITHDRAWAL SYNDROME [None]
  - EDENTULOUS [None]
  - ERECTILE DYSFUNCTION [None]
  - GASTRITIS [None]
  - GASTROOESOPHAGEAL REFLUX DISEASE [None]
  - HOARSENESS [None]
  - INADEQUATE ANALGESIA [None]
  - INSOMNIA [None]
  - NEUROPATHIC PAIN [None]
  - PAIN [None]
  - SEDATION [None]
  - SINUSITIS [None]
  - VISUAL ACUITY REDUCED [None]
